FAERS Safety Report 8087467-5 (Version None)
Quarter: 2012Q1

REPORT INFORMATION
  Report Type: 
  Country: None (occurrence: None)
  Receive Date: 20120128
  Receipt Date: 20110524
  Transmission Date: 20120608
  Serious: No
  Sender: FDA-Public Use
  Company Number: US-ABBOTT-11P-163-0728184-00

PATIENT
  Age: 45 Year
  Sex: Female

DRUGS (7)
  1. XANAX [Concomitant]
     Indication: INSOMNIA
  2. XANAX [Concomitant]
     Indication: RESTLESS LEGS SYNDROME
  3. HYDROCODONE BITARTRATE [Concomitant]
     Indication: BACK PAIN
     Dosage: 10/650MG, 3XDAILY
  4. HYDROCODONE BITARTRATE [Concomitant]
     Indication: RESTLESS LEGS SYNDROME
  5. FLEXERIL [Concomitant]
     Indication: RESTLESS LEGS SYNDROME
  6. HUMIRA [Suspect]
     Indication: PSORIASIS
     Dates: start: 20110422
  7. FLEXERIL [Concomitant]
     Indication: BACK PAIN

REACTIONS (6)
  - MEDIAL TIBIAL STRESS SYNDROME [None]
  - PSORIASIS [None]
  - PRURITUS [None]
  - WOUND [None]
  - SKIN EXFOLIATION [None]
  - PUNCTURE SITE HAEMORRHAGE [None]
